FAERS Safety Report 4389329-3 (Version None)
Quarter: 2004Q2

REPORT INFORMATION
  Report Type: 
  Country: None (occurrence: None)
  Receive Date: 20040628
  Receipt Date: 20040615
  Transmission Date: 20050107
  Serious: Yes (Hospitalization)
  Sender: FDA-Public Use
  Company Number: GB-JNJFOC-20040603768

PATIENT
  Age: 49 Year
  Sex: Female

DRUGS (7)
  1. REMICADE [Suspect]
     Indication: RHEUMATOID ARTHRITIS
     Dosage: 200 MG, INTRAVENOUS
     Route: 042
     Dates: start: 20030709, end: 20030901
  2. PREDNISOLONE [Concomitant]
  3. VIOXX [Concomitant]
  4. CO-PROXAMOL (APOREX) [Concomitant]
  5. DIDRONEL [Concomitant]
  6. PANTOPRAZOLE [Concomitant]
  7. METHOTREXATE [Concomitant]

REACTIONS (1)
  - OEDEMA PERIPHERAL [None]
